FAERS Safety Report 7704185-0 (Version None)
Quarter: 2011Q3

REPORT INFORMATION
  Report Type: 
  Country: None (occurrence: None)
  Receive Date: 20110818
  Receipt Date: 20110810
  Transmission Date: 20111222
  Serious: Yes (Hospitalization)
  Sender: FDA-Public Use
  Company Number: 2011GW000435

PATIENT
  Age: 67 Year
  Sex: Female

DRUGS (2)
  1. FLECAINIDE ACETATE [Suspect]
     Indication: ATRIAL FIBRILLATION
  2. VERAPAMIL [Concomitant]

REACTIONS (7)
  - DRUG INTERACTION [None]
  - ATRIAL FIBRILLATION [None]
  - CARDIAC ARREST [None]
  - ALCOHOL USE [None]
  - OXYGEN SATURATION DECREASED [None]
  - CONDITION AGGRAVATED [None]
  - TORSADE DE POINTES [None]
